FAERS Safety Report 23109731 (Version 1)
Quarter: 2023Q4

REPORT INFORMATION
  Report Type: Spontaneous
  Country: US (occurrence: None)
  Receive Date: 20231024
  Receipt Date: 20231024
  Transmission Date: 20240110
  Serious: Yes (Hospitalization)
  Sender: FDA-Public Use
  Company Number: None

PATIENT
  Age: 72 Year
  Weight: 47 kg

DRUGS (1)
  1. GLYCOPYRROLATE [Suspect]
     Active Substance: GLYCOPYRROLATE
     Dosage: OTHER STRENGTH : 25MCG/ML;?
     Dates: start: 20210416, end: 20230509

REACTIONS (1)
  - Urinary retention [None]

NARRATIVE: CASE EVENT DATE: 20230501
